FAERS Safety Report 5467194-0 (Version None)
Quarter: 2007Q3

REPORT INFORMATION
  Report Type: 
  Country: None (occurrence: None)
  Receive Date: 20070925
  Receipt Date: 20070912
  Transmission Date: 20080115
  Serious: Yes (Hospitalization)
  Sender: FDA-Public Use
  Company Number: JP-ASTRAZENECA-2007AP05459

PATIENT
  Age: 88 Year
  Sex: Male

DRUGS (2)
  1. MEROPENEM [Suspect]
     Indication: URINARY TRACT INFECTION
     Route: 042
  2. NEOPHYLLIN [Concomitant]
     Route: 045

REACTIONS (1)
  - LARYNGEAL OEDEMA [None]
